FAERS Safety Report 12725178 (Version 1)
Quarter: 2016Q3

REPORT INFORMATION
  Report Type: Spontaneous
  Country: US (occurrence: US)
  Receive Date: 20160908
  Receipt Date: 20160908
  Transmission Date: 20161109
  Serious: Yes (Hospitalization)
  Sender: FDA-Public Use
  Company Number: US-CELGENEUS-USA-2016091202

PATIENT
  Age: 73 Year
  Sex: Female
  Weight: 61.6 kg

DRUGS (3)
  1. VENETOCLAX [Suspect]
     Active Substance: VENETOCLAX
     Indication: ACUTE MYELOID LEUKAEMIA
     Route: 048
  2. MAGNESIUM [Concomitant]
     Active Substance: MAGNESIUM
     Indication: PRODUCT USED FOR UNKNOWN INDICATION
     Route: 041
  3. VIDAZA [Suspect]
     Active Substance: AZACITIDINE
     Indication: ACUTE MYELOID LEUKAEMIA
     Route: 041

REACTIONS (1)
  - Asthenia [Not Recovered/Not Resolved]

NARRATIVE: CASE EVENT DATE: 20160811
